FAERS Safety Report 7130642-4 (Version None)
Quarter: 2010Q4

REPORT INFORMATION
  Report Type: 
  Country: None (occurrence: None)
  Receive Date: 20101101
  Receipt Date: 20101001
  Transmission Date: 20110411
  Serious: No
  Sender: FDA-Public Use
  Company Number: 2010-13212

PATIENT
  Age: 47 Year
  Sex: Male
  Weight: 70.4 kg

DRUGS (1)
  1. RAPAFLO [Suspect]
     Indication: NEPHROLITHIASIS
     Dosage: TOOK 1 TABLET THEN DISCONTINUED MEDICATION, ORAL
     Route: 048
     Dates: start: 20100930, end: 20100930

REACTIONS (2)
  - BLOOD URINE PRESENT [None]
  - CHROMATURIA [None]
